FAERS Safety Report 7463229-4 (Version None)
Quarter: 2011Q2

REPORT INFORMATION
  Report Type: 
  Country: None (occurrence: None)
  Receive Date: 20110506
  Receipt Date: 20110503
  Transmission Date: 20111010
  Serious: Yes (Death, Other)
  Sender: FDA-Public Use
  Company Number: GB-ROCHE-769599

PATIENT
  Sex: Female

DRUGS (21)
  1. ZOLEDRONIC ACID [Concomitant]
     Dates: end: 20110202
  2. DICLOFENAC [Concomitant]
  3. FLUOROURACIL [Concomitant]
     Dates: end: 20070220
  4. ANASTROZOLE [Concomitant]
     Dates: start: 20060906, end: 20101011
  5. SENNOSIDES [Concomitant]
  6. BECLOMETHASONE DIPROPIONATE MONOHYDRATE [Concomitant]
  7. NAPROXEN [Concomitant]
  8. EXEMESTANE [Concomitant]
     Dates: start: 20101012, end: 20101209
  9. ASPIRIN [Concomitant]
  10. ROSUVASTATIN CALCIUM [Concomitant]
  11. LATANOPROST [Concomitant]
  12. BRINZOLAMIDE [Concomitant]
  13. CITALOPRAM HYDROBROMIDE [Concomitant]
  14. MORPHINE [Concomitant]
  15. HERCEPTIN [Suspect]
     Route: 042
     Dates: start: 20101214, end: 20110314
  16. MAGNESIUM SALT [Concomitant]
  17. DOCETAXEL [Suspect]
     Route: 042
     Dates: start: 20101214, end: 20110314
  18. CYCLOPHOSPHAMIDE [Concomitant]
     Dates: end: 20070220
  19. EPIRUBICIN [Concomitant]
     Dates: end: 20070220
  20. LANSOPRAZOLE [Concomitant]
  21. ONDANSETRON HYDROCHLORIDE [Concomitant]

REACTIONS (3)
  - CEREBRAL INFARCTION [None]
  - ARTERIOSCLEROSIS CORONARY ARTERY [None]
  - MYOCARDIAL ISCHAEMIA [None]
